FAERS Safety Report 9829705 (Version 1)
Quarter: 2014Q1

REPORT INFORMATION
  Report Type: Spontaneous
  Country: IN (occurrence: IN)
  Receive Date: 20140120
  Receipt Date: 20140120
  Transmission Date: 20141002
  Serious: Yes (Other)
  Sender: FDA-Public Use
  Company Number: IN-SUN PHARMACEUTICAL INDUSTRIES LTD-2014SUN00037

PATIENT
  Age: 48 Year
  Sex: Male

DRUGS (3)
  1. VALPROIC ACID CAPSULES, USP 250 MG [Suspect]
     Indication: BIPOLAR DISORDER
     Dosage: 1500 MG, UNK
     Route: 048
  2. RISPERIDONE ODT [Suspect]
     Indication: BIPOLAR DISORDER
     Dosage: 6 MG, QD
     Route: 048
  3. LITHIUM [Suspect]
     Indication: MOOD SWINGS
     Route: 065

REACTIONS (3)
  - Priapism [Recovered/Resolved]
  - Hypothyroidism [Unknown]
  - Emotional distress [None]
